FAERS Safety Report 17362323 (Version 2)
Quarter: 2020Q3

REPORT INFORMATION
  Report Type: Other
  Country: DK (occurrence: DK)
  Receive Date: 20200203
  Receipt Date: 20200710
  Transmission Date: 20201102
  Serious: Yes (Other)
  Sender: FDA-Public Use
  Company Number: DK-BIODELIVERY SCIENCES INTERNATIONAL-2020BDSI0074

PATIENT
  Age: 2 Year
  Sex: Male

DRUGS (24)
  1. MORPHINE [Suspect]
     Active Substance: MORPHINE
     Indication: SLEEP DISORDER
     Route: 065
  2. THIOPENTAL [Suspect]
     Active Substance: THIOPENTAL
     Indication: SLEEP DISORDER
     Route: 065
  3. LEVOMEPROMAZINE [Suspect]
     Active Substance: LEVOMEPROMAZINE
     Indication: SLEEP DISORDER
     Route: 065
  4. CLONIDINE. [Suspect]
     Active Substance: CLONIDINE
     Indication: SEDATIVE THERAPY
     Route: 065
  5. CLONIDINE. [Suspect]
     Active Substance: CLONIDINE
     Indication: SLEEP DISORDER
     Route: 065
  6. LEVOMEPROMAZINE [Suspect]
     Active Substance: LEVOMEPROMAZINE
     Indication: SEDATIVE THERAPY
     Route: 065
  7. RISPERIDONE. [Suspect]
     Active Substance: RISPERIDONE
     Indication: SLEEP DISORDER
     Route: 065
  8. MIDAZOLAM. [Suspect]
     Active Substance: MIDAZOLAM
     Indication: SEDATIVE THERAPY
     Route: 065
  9. FENTANYL CITRATE. [Suspect]
     Active Substance: FENTANYL CITRATE
     Indication: SLEEP DISORDER THERAPY
     Route: 065
  10. RISPERIDONE. [Suspect]
     Active Substance: RISPERIDONE
     Indication: SEDATIVE THERAPY
     Route: 065
  11. PROMETHAZINE [Suspect]
     Active Substance: PROMETHAZINE HYDROCHLORIDE
     Indication: SEDATIVE THERAPY
     Route: 065
  12. FENTANYL CITRATE. [Suspect]
     Active Substance: FENTANYL CITRATE
     Indication: SEDATION
     Route: 065
  13. FENTANYL CITRATE. [Suspect]
     Active Substance: FENTANYL CITRATE
     Indication: SEDATIVE THERAPY
     Route: 065
  14. KETAMINE [Suspect]
     Active Substance: KETAMINE
     Indication: SLEEP DISORDER
     Route: 065
  15. PROMETHAZINE [Suspect]
     Active Substance: PROMETHAZINE HYDROCHLORIDE
     Indication: SLEEP DISORDER
     Route: 065
  16. PHENOBARBITAL. [Suspect]
     Active Substance: PHENOBARBITAL
     Indication: SEDATIVE THERAPY
  17. MIDAZOLAM. [Suspect]
     Active Substance: MIDAZOLAM
     Indication: SLEEP DISORDER
     Route: 065
  18. THIOPENTAL [Suspect]
     Active Substance: THIOPENTAL
     Indication: SEDATIVE THERAPY
     Route: 065
  19. PHENOBARBITAL. [Suspect]
     Active Substance: PHENOBARBITAL
     Indication: SLEEP DISORDER
     Route: 048
  20. HALOPERIDOL. [Suspect]
     Active Substance: HALOPERIDOL
     Indication: SEDATIVE THERAPY
     Route: 065
  21. KETAMINE [Suspect]
     Active Substance: KETAMINE
     Indication: SEDATIVE THERAPY
     Route: 065
  22. MORPHINE [Suspect]
     Active Substance: MORPHINE
     Indication: SLEEP DISORDER
     Route: 065
  23. HALOPERIDOL. [Suspect]
     Active Substance: HALOPERIDOL
     Indication: SLEEP DISORDER
     Route: 065
  24. PROPOFOL. [Suspect]
     Active Substance: PROPOFOL
     Indication: SLEEP DISORDER THERAPY
     Route: 065

REACTIONS (4)
  - Extrapyramidal disorder [Unknown]
  - Off label use [Unknown]
  - Product use issue [Unknown]
  - Agitation [Unknown]
